FAERS Safety Report 26129424 (Version 2)
Quarter: 2025Q4

REPORT INFORMATION
  Report Type: Spontaneous
  Country: US (occurrence: US)
  Receive Date: 20251208
  Receipt Date: 20251217
  Transmission Date: 20260118
  Serious: Yes (Life-Threatening, Other)
  Sender: AUROBINDO
  Company Number: US-MLMSERVICE-20251117-PI714237-00229-1

PATIENT
  Age: 17 Year
  Sex: Female

DRUGS (4)
  1. ACETAMINOPHEN\HYDROCODONE [Suspect]
     Active Substance: ACETAMINOPHEN\HYDROCODONE
     Indication: Product used for unknown indication
     Dosage: 20 HYDROCODONE 10 MG ACETAMINOPHEN 325 MG TABLETS
     Route: 061
  2. FLUOXETINE [Suspect]
     Active Substance: FLUOXETINE HYDROCHLORIDE
     Indication: Product used for unknown indication
     Dosage: 400 MILLIGRAM
     Route: 061
  3. OLANZAPINE [Suspect]
     Active Substance: OLANZAPINE
     Indication: Product used for unknown indication
     Dosage: 120 MILLIGRAM
     Route: 061
  4. MORPHINE SULFATE [Suspect]
     Active Substance: MORPHINE SULFATE
     Indication: Product used for unknown indication
     Dosage: 30 MILLIGRAM (240 MILLIGRAM)
     Route: 061

REACTIONS (9)
  - Electrocardiogram QT prolonged [Unknown]
  - Respiratory depression [Recovered/Resolved]
  - Depressed level of consciousness [Recovered/Resolved]
  - Tachycardia [Unknown]
  - Hypopnoea [Recovered/Resolved]
  - Bradypnoea [Recovered/Resolved]
  - Depression [Unknown]
  - Somnolence [Unknown]
  - Overdose [Unknown]
